FAERS Safety Report 12855964 (Version 1)
Quarter: 2016Q4

REPORT INFORMATION
  Report Type: Report from Study
  Country: US (occurrence: US)
  Receive Date: 20161018
  Receipt Date: 20161018
  Transmission Date: 20170207
  Serious: No
  Sender: FDA-Public Use
  Company Number: GXBR2014US002462

PATIENT
  Sex: Female
  Weight: 74.83 kg

DRUGS (6)
  1. DOXYLAMINE [Concomitant]
     Active Substance: DOXYLAMINE
     Indication: PREGNANCY
     Dosage: 12.5 MG, Q8H
     Route: 048
  2. ENOXAPARIN SODIUM. [Suspect]
     Active Substance: ENOXAPARIN SODIUM
     Indication: VENOUS THROMBOSIS
     Dosage: 80 MG, Q12H
     Route: 065
  3. VITAMIN B6 [Concomitant]
     Active Substance: PYRIDOXINE HYDROCHLORIDE
     Indication: PREGNANCY
     Dosage: 50 MG, Q8H
     Route: 048
  4. ZOFRON [Concomitant]
     Active Substance: ONDANSETRON
     Indication: NAUSEA
     Dosage: 4 MG, PRN
     Route: 048
  5. ZOFRON [Concomitant]
     Active Substance: ONDANSETRON
     Indication: VOMITING
  6. PRENATAL [Concomitant]
     Active Substance: VITAMINS
     Indication: PREGNANCY
     Dosage: 1 TABLET, QD

REACTIONS (1)
  - Maternal exposure during pregnancy [Not Recovered/Not Resolved]
